FAERS Safety Report 8572217-6 (Version None)
Quarter: 2012Q3

REPORT INFORMATION
  Report Type: 
  Country: None (occurrence: None)
  Receive Date: 20120806
  Receipt Date: 20120727
  Transmission Date: 20120928
  Serious: Yes (Other)
  Sender: FDA-Public Use
  Company Number: JP-ASTELLAS-2012JP007017

PATIENT
  Age: 67 Year
  Sex: Female

DRUGS (5)
  1. PROGRAF [Suspect]
     Indication: RHEUMATOID ARTHRITIS
     Dosage: 3 MG, UNKNOWN/D
     Route: 048
     Dates: end: 20120724
  2. LANSOPRAZOLE [Concomitant]
     Route: 065
  3. PREDNISOLONE [Concomitant]
     Route: 065
  4. MUCOSTA [Concomitant]
     Route: 065
  5. RHEUMATREX [Concomitant]
     Route: 048

REACTIONS (1)
  - RENAL DISORDER [None]
